FAERS Safety Report 4752164-8 (Version None)
Quarter: 2005Q3

REPORT INFORMATION
  Report Type: 
  Country: None (occurrence: None)
  Receive Date: 20050825
  Receipt Date: 20050816
  Transmission Date: 20060218
  Serious: Yes (Hospitalization, Other)
  Sender: FDA-Public Use
  Company Number: FR-JNJFOC-20050700386

PATIENT
  Sex: Female
  Weight: 48 kg

DRUGS (4)
  1. RISPERDAL [Suspect]
     Route: 048
  2. RISPERDAL [Suspect]
     Indication: DELUSION
     Route: 048
  3. PROZAC [Concomitant]
  4. PROZAC [Concomitant]
     Indication: DEPRESSION

REACTIONS (3)
  - ABDOMINAL PAIN UPPER [None]
  - NEUTROPENIA [None]
  - WEIGHT DECREASED [None]
